FAERS Safety Report 7338875-9 (Version None)
Quarter: 2011Q1

REPORT INFORMATION
  Report Type: 
  Country: None (occurrence: None)
  Receive Date: 20110308
  Receipt Date: 20110302
  Transmission Date: 20110831
  Serious: Yes (Other)
  Sender: FDA-Public Use
  Company Number: DE-ROCHE-764006

PATIENT
  Sex: Female

DRUGS (1)
  1. HERCEPTIN [Suspect]
     Route: 065
     Dates: start: 20070101, end: 20080101

REACTIONS (4)
  - PROTEINURIA [None]
  - BLOOD CREATININE INCREASED [None]
  - CARDIOMYOPATHY [None]
  - RENAL IMPAIRMENT [None]
